FAERS Safety Report 9861064 (Version 2)
Quarter: 2014Q1

REPORT INFORMATION
  Report Type: Spontaneous
  Country: US (occurrence: US)
  Receive Date: 20140202
  Receipt Date: 20140202
  Transmission Date: 20141002
  Serious: No
  Sender: FDA-Public Use
  Company Number: US-ALLERGAN-1303157US

PATIENT
  Age: 34 Year
  Sex: Female

DRUGS (3)
  1. BOTOX [Suspect]
     Indication: LOWER URINARY TRACT SYMPTOMS
     Dosage: 300 UNITS, SINGLE
     Route: 030
  2. BOTOX [Suspect]
     Dosage: 200 UNITS, SINGLE
     Route: 030
     Dates: start: 2011, end: 2011
  3. BOTOX [Suspect]
     Dosage: 100 UNITS, SINGLE
     Route: 030
     Dates: start: 2011, end: 2011

REACTIONS (2)
  - Off label use [Unknown]
  - Urinary retention [Not Recovered/Not Resolved]
